FAERS Safety Report 9143315 (Version 2)
Quarter: 2013Q1

REPORT INFORMATION
  Report Type: Spontaneous
  Country: US (occurrence: US)
  Receive Date: 20130306
  Receipt Date: 20130327
  Transmission Date: 20140127
  Serious: Yes (Disabling)
  Sender: FDA-Public Use
  Company Number: US-PFIZER INC-2013077077

PATIENT
  Age: 63 Year
  Sex: Male
  Weight: 99.77 kg

DRUGS (10)
  1. LYRICA [Suspect]
     Indication: DIABETIC NEUROPATHY
     Dosage: 75 MG, 2X/DAY
     Route: 048
     Dates: start: 2008
  2. LYRICA [Suspect]
     Indication: FIBROMYALGIA
  3. GLIPIZIDE [Concomitant]
     Indication: DIABETES MELLITUS
     Dosage: 10 MG, 1X/DAY
  4. METFORMIN [Concomitant]
     Indication: DIABETES MELLITUS
     Dosage: 1000 MG, UNK
  5. LOPERAMIDE [Concomitant]
     Indication: DIARRHOEA
     Dosage: 2 MG, 1X/DAY
  6. LISINOPRIL [Concomitant]
     Indication: HYPERTENSION
     Dosage: 20 MG, 1X/DAY
  7. SERTRALINE [Concomitant]
     Indication: DEPRESSION
     Dosage: 75 MG, 1X/DAY
  8. LANTUS [Concomitant]
     Dosage: 35 UNITS, 1X/DAY
  9. VITAMIN B12 [Concomitant]
     Dosage: 1000 UNITS, 1X/DAY
  10. CHROMIUM [Concomitant]
     Dosage: 500 MG, UNK

REACTIONS (4)
  - Drug ineffective [Not Recovered/Not Resolved]
  - Fatigue [Not Recovered/Not Resolved]
  - Impaired work ability [Not Recovered/Not Resolved]
  - Pain [Not Recovered/Not Resolved]
